FAERS Safety Report 7967783-5 (Version None)
Quarter: 2011Q4

REPORT INFORMATION
  Report Type: 
  Country: None (occurrence: None)
  Receive Date: 20111209
  Receipt Date: 20111129
  Transmission Date: 20120403
  Serious: Yes (Hospitalization)
  Sender: FDA-Public Use
  Company Number: US-BAYER-2011-033925

PATIENT
  Age: 30 Year
  Sex: Female
  Weight: 104.31 kg

DRUGS (10)
  1. YASMIN [Suspect]
     Dosage: UNK
     Dates: start: 20000101, end: 20090101
  2. PROMETHAZINE [Concomitant]
     Route: 048
  3. YAZ [Suspect]
  4. LISINOPRIL [Concomitant]
     Dosage: UNK
     Dates: start: 20070101
  5. ZEGERID [Concomitant]
     Route: 048
  6. DROSPIRENONE AND ETHINYL ESTRADIOL [Suspect]
     Dosage: UNK
     Dates: start: 20000101, end: 20090101
  7. HYDROCHLOROTHIAZIDE [Concomitant]
     Dosage: UNK
     Dates: start: 20101001
  8. METFORMIN HCL [Concomitant]
     Dosage: 500 MG, TID
     Route: 048
     Dates: start: 20100101
  9. SYNTHROID [Concomitant]
     Dosage: UNK
     Dates: start: 20110101
  10. ALPRAZOLAM [Concomitant]
     Dosage: 0.05 MG, QD
     Dates: start: 20090101

REACTIONS (6)
  - ANHEDONIA [None]
  - GALLBLADDER INJURY [None]
  - PAIN [None]
  - INJURY [None]
  - CHOLELITHIASIS [None]
  - ANXIETY [None]
